FAERS Safety Report 24969905 (Version 1)
Quarter: 2025Q1

REPORT INFORMATION
  Report Type: Spontaneous
  Country: US (occurrence: None)
  Receive Date: 20250213
  Receipt Date: 20250213
  Transmission Date: 20250408
  Serious: Yes (Life-Threatening)
  Sender: FDA-CTU
  Company Number: None

PATIENT
  Age: 21 Year
  Sex: Female
  Weight: 68.67 kg

DRUGS (2)
  1. ENTYVIO [Suspect]
     Active Substance: VEDOLIZUMAB
     Indication: Crohn^s disease
     Route: 042
     Dates: start: 20231001, end: 20250208
  2. ENTYVIO [Concomitant]
     Active Substance: VEDOLIZUMAB
     Dates: start: 20231001, end: 20250208

REACTIONS (4)
  - Infusion related reaction [None]
  - Urticaria [None]
  - Crying [None]
  - Hypertension [None]

NARRATIVE: CASE EVENT DATE: 20250208
